FAERS Safety Report 6662115-7 (Version None)
Quarter: 2010Q1

REPORT INFORMATION
  Report Type: 
  Country: None (occurrence: None)
  Receive Date: 20100331
  Receipt Date: 20100323
  Transmission Date: 20100710
  Serious: Yes (Other)
  Sender: FDA-Public Use
  Company Number: US-PFIZER INC-2010037393

PATIENT
  Sex: Female
  Weight: 108.84 kg

DRUGS (4)
  1. XALATAN [Suspect]
     Indication: GLAUCOMA
     Dosage: 1 DROP IN EACH EYE ONCE DAILY
     Route: 047
  2. VALSARTAN [Concomitant]
     Indication: HYPERTENSION
     Dosage: 160 MG, 1X/DAY
  3. LANTUS [Concomitant]
     Indication: DIABETES MELLITUS
     Dosage: 30 IU IN MORNING AND 42 IU AT NIGHT
  4. HUMALOG [Concomitant]
     Indication: DIABETES MELLITUS
     Dosage: 10 IU IN MORNING AND 17 IU IN THE NIGHT

REACTIONS (3)
  - ACCIDENTAL EXPOSURE [None]
  - CATARACT [None]
  - HEADACHE [None]
